FAERS Safety Report 11120682 (Version 1)
Quarter: 2015Q2

REPORT INFORMATION
  Report Type: Report from Study
  Country: JP (occurrence: JP)
  Receive Date: 20150519
  Receipt Date: 20150519
  Transmission Date: 20150821
  Serious: Yes (Other)
  Sender: FDA-Public Use
  Company Number: JP-BAYER-2015-231992

PATIENT
  Age: 77 Year
  Sex: Female

DRUGS (2)
  1. NEXAVAR [Suspect]
     Active Substance: SORAFENIB
     Indication: THYROID CANCER
     Dosage: UNK
     Route: 048
     Dates: start: 20150130, end: 20150317
  2. NEXAVAR [Suspect]
     Active Substance: SORAFENIB
     Indication: THYROID CANCER
     Dosage: 600 MG/DAY BID
     Dates: start: 20150318

REACTIONS (1)
  - Uveitis [None]

NARRATIVE: CASE EVENT DATE: 20150513
